FAERS Safety Report 22034165 (Version 4)
Quarter: 2023Q2

REPORT INFORMATION
  Report Type: Spontaneous
  Country: US (occurrence: US)
  Receive Date: 20230224
  Receipt Date: 20230609
  Transmission Date: 20230721
  Serious: No
  Sender: FDA-Public Use
  Company Number: US-SA-SAC20230223000740

PATIENT
  Age: 46 Year
  Sex: Male

DRUGS (3)
  1. DUPIXENT [Suspect]
     Active Substance: DUPILUMAB
     Indication: Dermatitis atopic
     Dosage: 300 MG, QOW
     Route: 058
     Dates: start: 20220615
  2. DUPIXENT [Suspect]
     Active Substance: DUPILUMAB
     Indication: Asthma
  3. ADVIL [Concomitant]
     Active Substance: IBUPROFEN
     Dosage: UNK

REACTIONS (8)
  - Impaired quality of life [Unknown]
  - Furuncle [Not Recovered/Not Resolved]
  - Infection [Not Recovered/Not Resolved]
  - Skin swelling [Unknown]
  - Sleep disorder [Unknown]
  - Pain of skin [Not Recovered/Not Resolved]
  - Drug ineffective [Unknown]
  - Product dose omission in error [Unknown]
